FAERS Safety Report 8605818-7 (Version None)
Quarter: 2012Q3

REPORT INFORMATION
  Report Type: 
  Country: None (occurrence: None)
  Receive Date: 20120820
  Receipt Date: 20120814
  Transmission Date: 20120928
  Serious: Yes (Death)
  Sender: FDA-Public Use
  Company Number: US-GLAXOSMITHKLINE-A0982494A

PATIENT
  Age: 54 Year
  Sex: Female
  Weight: 79.1 kg

DRUGS (3)
  1. ABRAXANE [Concomitant]
     Route: 042
     Dates: start: 20120516, end: 20120516
  2. TYKERB [Suspect]
     Indication: BREAST CANCER METASTATIC
     Dosage: 1250MG PER DAY
     Route: 048
     Dates: start: 20110111, end: 20120616
  3. HALAVEN [Concomitant]
     Route: 042
     Dates: start: 20120201, end: 20120505

REACTIONS (3)
  - NEOPLASM MALIGNANT [None]
  - BREAST CANCER METASTATIC [None]
  - ASTHENIA [None]
